FAERS Safety Report 6425346-7 (Version None)
Quarter: 2009Q4

REPORT INFORMATION
  Report Type: 
  Country: None (occurrence: None)
  Receive Date: 20091103
  Receipt Date: 20091027
  Transmission Date: 20100525
  Serious: Yes (Hospitalization)
  Sender: FDA-Public Use
  Company Number: A0813038A

PATIENT
  Age: 46 Year
  Sex: Male

DRUGS (7)
  1. AVANDIA [Suspect]
     Indication: DIABETES MELLITUS
     Dosage: 4MG PER DAY
     Route: 048
     Dates: start: 20050101, end: 20071229
  2. AVAPRO [Concomitant]
  3. TRICOR [Concomitant]
  4. NASACORT [Concomitant]
  5. VYTORIN [Concomitant]
  6. SINGULAIR [Concomitant]
  7. LIPITOR [Concomitant]

REACTIONS (3)
  - CARDIAC FAILURE CONGESTIVE [None]
  - FRACTURE [None]
  - MYOCARDIAL INFARCTION [None]
